FAERS Safety Report 15719551 (Version 8)
Quarter: 2023Q2

REPORT INFORMATION
  Report Type: Report from Study
  Country: DE (occurrence: DE)
  Receive Date: 20181213
  Receipt Date: 20230613
  Transmission Date: 20230722
  Serious: Yes (Hospitalization, Other)
  Sender: FDA-Public Use
  Company Number: DE-JNJFOC-20181210884

PATIENT
  Age: 6 Decade
  Sex: Female

DRUGS (5)
  1. SIMPONI [Suspect]
     Active Substance: GOLIMUMAB
     Indication: Axial spondyloarthritis
     Dosage: THERAPY START DATE-15/APR/2018
     Route: 058
     Dates: end: 20210215
  2. SIMPONI [Suspect]
     Active Substance: GOLIMUMAB
     Route: 058
  3. SIMPONI [Suspect]
     Active Substance: GOLIMUMAB
     Dosage: THERAPY START DATE -23/FEB/2018?THERAPY END DATE-01/JUL/2022
     Route: 058
  4. NAPROXEN [Suspect]
     Active Substance: NAPROXEN
     Indication: Axial spondyloarthritis
     Dosage: THERAPY START DATE-15/APR/2018
     Route: 065
     Dates: end: 20210215
  5. PANTOZOL [Concomitant]
     Active Substance: PANTOPRAZOLE SODIUM
     Indication: Product used for unknown indication
     Dosage: 400 MG
     Route: 065
     Dates: start: 20220707, end: 20220721

REACTIONS (7)
  - Diverticulitis [Recovered/Resolved]
  - Hypertensive crisis [Unknown]
  - Uveitis [Unknown]
  - Facial bones fracture [Unknown]
  - Fall [Unknown]
  - Influenza like illness [Unknown]
  - Viral infection [Unknown]

NARRATIVE: CASE EVENT DATE: 20171115
